FAERS Safety Report 4907403-7 (Version None)
Quarter: 2006Q1

REPORT INFORMATION
  Report Type: 
  Country: None (occurrence: None)
  Receive Date: 20060208
  Receipt Date: 20060208
  Transmission Date: 20060701
  Serious: Yes (Hospitalization)
  Sender: FDA-Public Use
  Company Number: None

PATIENT
  Age: 44 Year
  Sex: Female
  Weight: 58.9676 kg

DRUGS (2)
  1. ALTACE [Suspect]
     Indication: HYPERTENSION
     Dosage: 5 MG ONCE A DAY PO
     Route: 048
     Dates: start: 20040917, end: 20051202
  2. LOTREL [Suspect]
     Indication: HYPERTENSION
     Dosage: 5 MG/10 MG ONCE A DAY PO
     Route: 048
     Dates: start: 20041202, end: 20050304

REACTIONS (3)
  - ABDOMINAL PAIN [None]
  - NAUSEA [None]
  - VOMITING [None]
